FAERS Safety Report 13230252 (Version 6)
Quarter: 2017Q3

REPORT INFORMATION
  Report Type: Report from Study
  Country: FR (occurrence: FR)
  Receive Date: 20170214
  Receipt Date: 20170915
  Transmission Date: 20171127
  Serious: Yes (Death, Hospitalization)
  Sender: FDA-Public Use
  Company Number: PHHO2017FR003083

PATIENT
  Age: 84 Year
  Sex: Female
  Weight: 67.7 kg

DRUGS (14)
  1. SOLUPRED [Concomitant]
     Active Substance: PREDNISOLONE
     Indication: ABDOMINAL PAIN
     Dosage: 20 MG, QD
     Route: 065
     Dates: start: 20161214
  2. EUPANTOL [Concomitant]
     Active Substance: PANTOPRAZOLE SODIUM
     Indication: PROPHYLAXIS
     Dosage: 40 MG, QD
     Route: 065
     Dates: start: 20161214
  3. PRIMPERAN [Concomitant]
     Active Substance: METOCLOPRAMIDE HYDROCHLORIDE
     Indication: PROPHYLAXIS
     Dosage: 10 MG, TID
     Route: 065
     Dates: start: 20170124
  4. PARACETAMOL [Concomitant]
     Active Substance: ACETAMINOPHEN
     Indication: ABDOMINAL PAIN
     Dosage: 500 MG, UPON REQUEST
     Route: 065
     Dates: start: 20161214
  5. ELIQUIS [Concomitant]
     Active Substance: APIXABAN
     Indication: PULMONARY EMBOLISM
     Dosage: 2.5 MG, BID
     Route: 065
     Dates: start: 20170124
  6. DUROGESIC [Concomitant]
     Active Substance: FENTANYL
     Indication: ABDOMINAL PAIN
     Dosage: 12UG/H
     Route: 065
     Dates: start: 20161215
  7. TRIMEBUTINE [Concomitant]
     Active Substance: TRIMEBUTINE
     Indication: ABDOMINAL PAIN
     Dosage: 100 MG, TID
     Route: 065
     Dates: start: 20161026
  8. RAD 666 / RAD 001A [Suspect]
     Active Substance: EVEROLIMUS
     Indication: NEOPLASM
     Dosage: 10 MG, QD
     Route: 048
     Dates: start: 20170125, end: 20170202
  9. ACTISKENAN [Concomitant]
     Active Substance: MORPHINE SULFATE
     Indication: ABDOMINAL PAIN
     Dosage: 5 MG, UPON REQUEST
     Route: 065
     Dates: start: 20170124
  10. LASILIX [Concomitant]
     Active Substance: FUROSEMIDE
     Indication: PULMONARY EMBOLISM
     Dosage: 40 MG, QD
     Route: 065
     Dates: start: 20170124
  11. MIRTAZAPINE. [Concomitant]
     Active Substance: MIRTAZAPINE
     Indication: DEPRESSION
     Dosage: 15 MG, QD
     Route: 065
     Dates: start: 20170124
  12. TARGOCID [Concomitant]
     Active Substance: TEICOPLANIN
     Indication: URINARY TRACT INFECTION
     Dosage: UNK
     Route: 065
     Dates: start: 20170114
  13. LEVOFLOXACIN. [Concomitant]
     Active Substance: LEVOFLOXACIN
     Indication: URINARY TRACT INFECTION
     Dosage: 500 MG, QD
     Route: 065
     Dates: start: 20170114, end: 20170127
  14. ALPRAZOLAM. [Concomitant]
     Active Substance: ALPRAZOLAM
     Indication: DEPRESSION
     Dosage: 0.25 MG, UPON REQUEST
     Route: 065
     Dates: start: 20170124

REACTIONS (1)
  - Vesical fistula [Fatal]

NARRATIVE: CASE EVENT DATE: 20170202
